FAERS Safety Report 22157692 (Version 1)
Quarter: 2023Q1

REPORT INFORMATION
  Report Type: Spontaneous
  Country: US (occurrence: US)
  Receive Date: 20230330
  Receipt Date: 20230330
  Transmission Date: 20230417
  Serious: No
  Sender: FDA-Public Use
  Company Number: US-PFIZER INC-202300134541

PATIENT
  Age: 62 Year
  Sex: Male
  Weight: 124.74 kg

DRUGS (4)
  1. PAXLOVID [Suspect]
     Active Substance: NIRMATRELVIR\RITONAVIR
     Indication: COVID-19 treatment
     Dosage: TWO 150MG TABLETS OF NIRMATRELVIR AND ONE 100MG TABLET OF RITONAVIR TWICE A DAY
     Dates: start: 20230325
  2. SIMVASTATIN [Suspect]
     Active Substance: SIMVASTATIN
     Indication: Blood cholesterol abnormal
     Dosage: 20 MG, 1X/DAY
     Route: 048
     Dates: end: 20230326
  3. TAMSULOSIN [Concomitant]
     Active Substance: TAMSULOSIN
     Dosage: 4 MG, 1X/DAY
     Route: 048
     Dates: end: 20230326
  4. MICARDIS HCT [Concomitant]
     Active Substance: HYDROCHLOROTHIAZIDE\TELMISARTAN
     Indication: Hypertension
     Dosage: 40 MG, DAILY
     Route: 048

REACTIONS (4)
  - Rash [Recovering/Resolving]
  - Taste disorder [Not Recovered/Not Resolved]
  - Product use complaint [Unknown]
  - Contraindicated product administered [Unknown]

NARRATIVE: CASE EVENT DATE: 20230301
